FAERS Safety Report 17911676 (Version 3)
Quarter: 2022Q1

REPORT INFORMATION
  Report Type: Spontaneous
  Country: US (occurrence: US)
  Receive Date: 20200618
  Receipt Date: 20220223
  Transmission Date: 20220424
  Serious: No
  Sender: FDA-Public Use
  Company Number: US-PFIZER INC-2020235686

PATIENT
  Age: 60 Year
  Sex: Female
  Weight: 91.63 kg

DRUGS (1)
  1. XELJANZ XR [Suspect]
     Active Substance: TOFACITINIB CITRATE
     Indication: Rheumatoid arthritis
     Dosage: 11 MG

REACTIONS (6)
  - Diarrhoea [Unknown]
  - Rash [Unknown]
  - Skin exfoliation [Unknown]
  - Skin irritation [Unknown]
  - Osteoarthritis [Unknown]
  - Osteoporosis [Unknown]
